FAERS Safety Report 18777145 (Version 1)
Quarter: 2021Q1

REPORT INFORMATION
  Report Type: Spontaneous
  Country: KR (occurrence: KR)
  Receive Date: 20210122
  Receipt Date: 20210122
  Transmission Date: 20210419
  Serious: Yes (Other)
  Sender: FDA-Public Use
  Company Number: KR-ALLERGAN-2103516US

PATIENT
  Sex: Female

DRUGS (3)
  1. AMISULPRIDE [Suspect]
     Active Substance: AMISULPRIDE
     Indication: SCHIZOPHRENIA
     Dosage: 400 MG
     Route: 065
  2. VALPROATE [Suspect]
     Active Substance: VALPROIC ACID
     Indication: SCHIZOPHRENIA
     Dosage: 1000 MG
     Route: 065
  3. ESCITALOPRAM OXALATE ? BP [Suspect]
     Active Substance: ESCITALOPRAM OXALATE
     Indication: SCHIZOPHRENIA
     Route: 065

REACTIONS (7)
  - Constipation [Unknown]
  - Product use in unapproved indication [Unknown]
  - Sedation complication [Unknown]
  - Muscle rigidity [Unknown]
  - Electrocardiogram QT prolonged [Unknown]
  - Hypercholesterolaemia [Unknown]
  - Tremor [Unknown]
